FAERS Safety Report 23990348 (Version 3)
Quarter: 2024Q3

REPORT INFORMATION
  Report Type: Report from Study
  Country: CH (occurrence: CH)
  Receive Date: 20240619
  Receipt Date: 20240725
  Transmission Date: 20241017
  Serious: Yes (Hospitalization, Other)
  Sender: TRAVERE THERAPEUTICS
  Company Number: TRAVERE

PATIENT
  Age: 59 Year
  Sex: Male
  Weight: 84 kg

DRUGS (18)
  1. FILSPARI [Suspect]
     Active Substance: SPARSENTAN
     Indication: IgA nephropathy
     Route: 050
     Dates: start: 20240519
  2. FILSPARI [Suspect]
     Active Substance: SPARSENTAN
     Route: 050
  3. PITAVASTATIN [Concomitant]
     Active Substance: PITAVASTATIN
     Indication: Lipids abnormal
     Route: 050
     Dates: start: 20230913
  4. PITAVASTATIN [Concomitant]
     Active Substance: PITAVASTATIN
     Indication: Hyperlipidaemia
  5. INDAPAMIDE [Concomitant]
     Active Substance: INDAPAMIDE
     Indication: Hypertension
     Route: 050
     Dates: start: 20200225, end: 20240602
  6. DAPAGLIFLOZIN [Concomitant]
     Active Substance: DAPAGLIFLOZIN
     Indication: Renal disorder
     Route: 050
     Dates: start: 20210113
  7. DAPAGLIFLOZIN [Concomitant]
     Active Substance: DAPAGLIFLOZIN
     Indication: IgA nephropathy
  8. ASPIRIN [Concomitant]
     Active Substance: ASPIRIN
     Indication: Platelet aggregation abnormal
     Route: 050
     Dates: start: 20180602
  9. ASPIRIN [Concomitant]
     Active Substance: ASPIRIN
     Indication: Coronary artery disease
  10. TICAGRELOR [Concomitant]
     Active Substance: TICAGRELOR
     Indication: Platelet aggregation abnormal
     Dosage: FOR 12 MONTH
     Route: 050
     Dates: start: 20230906, end: 20240505
  11. TICAGRELOR [Concomitant]
     Active Substance: TICAGRELOR
     Indication: Acute myocardial infarction
  12. PANTOPRAZOLE [Concomitant]
     Active Substance: PANTOPRAZOLE
     Indication: Gastrooesophageal reflux disease
     Dates: start: 20230531
  13. ALLOPURINOL [Concomitant]
     Active Substance: ALLOPURINOL
     Dates: start: 20200616
  14. RYBELSUS [Concomitant]
     Active Substance: SEMAGLUTIDE
     Dates: start: 20221201
  15. VITAMIN D3 SPIRIG HC [Concomitant]
     Indication: Vitamin D deficiency
     Dosage: 800 IE DAILY
     Dates: start: 20211204
  16. LERCANIDIPINE [Concomitant]
     Active Substance: LERCANIDIPINE
     Indication: Hypertension
     Route: 050
     Dates: start: 20240303, end: 20240530
  17. LERCANIDIPINE [Concomitant]
     Active Substance: LERCANIDIPINE
     Route: 050
     Dates: start: 20240531
  18. REPATHA [Concomitant]
     Active Substance: EVOLOCUMAB
     Indication: Hyperlipidaemia
     Dosage: (140UG/ML)
     Route: 050
     Dates: start: 20211224

REACTIONS (2)
  - Syncope [Recovered/Resolved]
  - Heart rate increased [Recovered/Resolved]

NARRATIVE: CASE EVENT DATE: 20240601
